FAERS Safety Report 14102883 (Version 2)
Quarter: 2017Q4

REPORT INFORMATION
  Report Type: Spontaneous
  Country: US (occurrence: US)
  Receive Date: 20171018
  Receipt Date: 20171115
  Transmission Date: 20180321
  Serious: No
  Sender: FDA-Public Use
  Company Number: US-MYLANLABS-2017M1065518

PATIENT
  Sex: Female

DRUGS (1)
  1. PINDOLOL TABLETS, USP [Suspect]
     Active Substance: PINDOLOL
     Indication: PRODUCT USED FOR UNKNOWN INDICATION
     Dosage: UNK

REACTIONS (5)
  - Fall [Unknown]
  - Nail discolouration [Unknown]
  - Pain in extremity [Unknown]
  - Peripheral swelling [Unknown]
  - Gait disturbance [Unknown]
